FAERS Safety Report 8524813-X (Version None)
Quarter: 2012Q3

REPORT INFORMATION
  Report Type: 
  Country: None (occurrence: None)
  Receive Date: 20120720
  Receipt Date: 20120320
  Transmission Date: 20120928
  Serious: Yes (Other)
  Sender: FDA-Public Use
  Company Number: BE-GLAXOSMITHKLINE-B0790665A

PATIENT

DRUGS (1)
  1. PAROXETINE HYDROCHLORIDE [Suspect]
     Indication: PRODUCT USED FOR UNKNOWN INDICATION
     Route: 064

REACTIONS (5)
  - VENTRICULAR TACHYCARDIA [None]
  - EXTRASYSTOLES [None]
  - BRADYCARDIA [None]
  - ARRHYTHMIA [None]
  - FOETAL EXPOSURE DURING PREGNANCY [None]
